FAERS Safety Report 5099098-X (Version None)
Quarter: 2006Q3

REPORT INFORMATION
  Report Type: 
  Country: None (occurrence: None)
  Receive Date: 20060731
  Receipt Date: 20060427
  Transmission Date: 20061208
  Serious: Yes (Hospitalization)
  Sender: FDA-Public Use
  Company Number: 224415

PATIENT
  Age: 78 Year
  Sex: Male
  Weight: 68 kg

DRUGS (11)
  1. RITUXAN [Suspect]
     Indication: LYMPHOMA
     Dosage: 725 MG, Q3W, INTRAVENOUS
     Route: 042
     Dates: start: 20060220, end: 20060419
  2. RITUXAN [Suspect]
  3. CYTOXAN [Concomitant]
  4. ADRIAMYCIN PFS [Concomitant]
  5. VINCRISTINE [Concomitant]
  6. NEULASTA [Concomitant]
  7. ASA (ACETYLSALICYLIC ACID) (ASPIRIN) [Concomitant]
  8. COUMADIN [Concomitant]
  9. PEPCID [Concomitant]
  10. MICRO-K (POTASSIUM CHLORIDE) [Concomitant]
  11. PREDNISONE TAB [Concomitant]

REACTIONS (1)
  - LUNG INFILTRATION [None]
